FAERS Safety Report 20048545 (Version 1)
Quarter: 2021Q4

REPORT INFORMATION
  Report Type: Spontaneous
  Country: FR (occurrence: FR)
  Receive Date: 20211109
  Receipt Date: 20211109
  Transmission Date: 20220303
  Serious: Yes (Hospitalization)
  Sender: FDA-Public Use
  Company Number: None

PATIENT
  Age: 57 Year
  Sex: Female
  Weight: 55 kg

DRUGS (5)
  1. CARBOPLATIN [Interacting]
     Active Substance: CARBOPLATIN
     Indication: Lung adenocarcinoma
     Dosage: STRENGTH: 10 MG /ML
     Route: 042
     Dates: start: 20210715, end: 20210923
  2. COLCHICINE [Interacting]
     Active Substance: COLCHICINE
     Indication: Familial mediterranean fever
     Dosage: STRENGTH:1 MG
     Route: 048
  3. PEMETREXED [Interacting]
     Active Substance: PEMETREXED
     Indication: Lung adenocarcinoma
     Dosage: STRENGTH: 500 MG,
     Route: 042
     Dates: start: 20210715, end: 20210923
  4. ESCITALOPRAM OXALATE [Concomitant]
     Active Substance: ESCITALOPRAM OXALATE
     Route: 048
  5. LANSOPRAZOLE [Concomitant]
     Active Substance: LANSOPRAZOLE

REACTIONS (3)
  - Drug interaction [Unknown]
  - Febrile bone marrow aplasia [Recovered/Resolved]
  - Neutropenic colitis [Recovered/Resolved]

NARRATIVE: CASE EVENT DATE: 20210812
